FAERS Safety Report 23495181 (Version 1)
Quarter: 2024Q1

REPORT INFORMATION
  Report Type: Other
  Country: IT (occurrence: IT)
  Receive Date: 20240207
  Receipt Date: 20240207
  Transmission Date: 20240410
  Serious: Yes (Other)
  Sender: FDA-Public Use
  Company Number: None

PATIENT

DRUGS (1)
  1. FULPHILA [Suspect]
     Active Substance: PEGFILGRASTIM-JMDB
     Indication: Product used for unknown indication
     Dosage: SINGLE ADMINISTRATION
     Route: 065
     Dates: start: 202311

REACTIONS (1)
  - Neutropenia [Not Recovered/Not Resolved]

NARRATIVE: CASE EVENT DATE: 20231107
